FAERS Safety Report 5324782-X (Version None)
Quarter: 2007Q2

REPORT INFORMATION
  Report Type: 
  Country: None (occurrence: None)
  Receive Date: 20070515
  Receipt Date: 20070509
  Transmission Date: 20071010
  Serious: Yes (Hospitalization)
  Sender: FDA-Public Use
  Company Number: PHEH2007US03895

PATIENT
  Age: 61 Year
  Sex: Male
  Weight: 71.655 kg

DRUGS (4)
  1. ZELNORM [Suspect]
     Indication: CONSTIPATION
     Dosage: 6 MG, BID
     Route: 048
     Dates: start: 20060101, end: 20070330
  2. LISINOPRIL [Concomitant]
     Indication: HYPERTENSION
     Dosage: 40 MG, BID
     Dates: start: 20060101
  3. COREG [Concomitant]
     Indication: HYPERTENSION
     Dosage: 12.5 BQ, BID
     Route: 048
     Dates: start: 20060101, end: 20070330
  4. NIFEDIPINE [Concomitant]
     Indication: HYPERTENSION
     Dosage: 60 MG, QD
     Dates: start: 20060901, end: 20070330

REACTIONS (2)
  - BLOOD PRESSURE DIASTOLIC INCREASED [None]
  - HEADACHE [None]
